FAERS Safety Report 6366685-8 (Version None)
Quarter: 2009Q3

REPORT INFORMATION
  Report Type: 
  Country: None (occurrence: None)
  Receive Date: 20090921
  Receipt Date: 20090910
  Transmission Date: 20100115
  Serious: Yes (Hospitalization)
  Sender: FDA-Public Use
  Company Number: US-ALEXION-A200900646

PATIENT
  Sex: Female

DRUGS (4)
  1. SOLIRIS [Suspect]
     Indication: PAROXYSMAL NOCTURNAL HAEMOGLOBINURIA
     Dosage: UNK
     Route: 042
     Dates: start: 20060101
  2. SOLIRIS [Suspect]
     Dosage: 900 MG, Q3W
     Route: 042
  3. WARFARIN SODIUM [Concomitant]
     Dosage: 7.5 MG, TH+SU
     Route: 048
  4. WARFARIN SODIUM [Concomitant]
     Dosage: 5 MG, MO,TU,WE,FR+SA
     Route: 048

REACTIONS (4)
  - HAEMOLYSIS [None]
  - SEPSIS [None]
  - SEPTIC SHOCK [None]
  - SKIN LACERATION [None]
